FAERS Safety Report 5199533-2 (Version None)
Quarter: 2006Q4

REPORT INFORMATION
  Report Type: 
  Country: None (occurrence: None)
  Receive Date: 20061229
  Receipt Date: 20061219
  Transmission Date: 20070319
  Serious: Yes (Hospitalization)
  Sender: FDA-Public Use
  Company Number: 2006SP000659

PATIENT
  Age: 58 Year
  Sex: Male
  Weight: 94 kg

DRUGS (9)
  1. TEMOZOLOMIDE (S-P) (TEMOZOLOMIDE) [Suspect]
     Indication: MALIGNANT GLIOMA
     Dosage: 215 MG; QD
     Dates: start: 20060831, end: 20060831
  2. TEMOZOLOMIDE (S-P) (TEMOZOLOMIDE) [Suspect]
     Indication: NEOPLASM RECURRENCE
     Dosage: 215 MG; QD
     Dates: start: 20060831, end: 20060831
  3. TEMOZOLOMIDE (S-P) (TEMOZOLOMIDE) [Suspect]
     Indication: MALIGNANT GLIOMA
     Dosage: 215 MG; QD
     Dates: start: 20061116, end: 20061203
  4. TEMOZOLOMIDE (S-P) (TEMOZOLOMIDE) [Suspect]
     Indication: NEOPLASM RECURRENCE
     Dosage: 215 MG; QD
     Dates: start: 20061116, end: 20061203
  5. DEXAMETHASONE TAB [Suspect]
     Indication: DRUG USE FOR UNKNOWN INDICATION
     Dosage: 8 MG; PO
     Route: 048
     Dates: start: 20061204
  6. PHENYTOIN SODIUM CAP [Concomitant]
  7. OMEPRAZOLE [Concomitant]
  8. DOMPERIDONE [Concomitant]
  9. PARACETAMOL [Concomitant]

REACTIONS (2)
  - ESCHERICHIA URINARY TRACT INFECTION [None]
  - LOWER RESPIRATORY TRACT INFECTION [None]
